FAERS Safety Report 23637714 (Version 1)
Quarter: 2024Q1

REPORT INFORMATION
  Report Type: Spontaneous
  Country: US (occurrence: US)
  Receive Date: 20240315
  Receipt Date: 20240315
  Transmission Date: 20240410
  Serious: Yes (Life-Threatening, Hospitalization, Other)
  Sender: FDA-Public Use
  Company Number: US-LUPIN PHARMACEUTICALS INC.-2024-02085

PATIENT
  Age: 58 Year
  Sex: Female

DRUGS (2)
  1. METFORMIN [Suspect]
     Active Substance: METFORMIN HYDROCHLORIDE
     Indication: Product used for unknown indication
     Dosage: 1000 MG, BID, FOR THE PAST ONE WEEK
     Route: 065
  2. ENALAPRIL [Suspect]
     Active Substance: ENALAPRIL
     Indication: Product used for unknown indication
     Dosage: 40 MG, QD, FOR THE PAST ONE WEEK
     Route: 065

REACTIONS (7)
  - Lactic acidosis [Recovering/Resolving]
  - Metabolic encephalopathy [Recovering/Resolving]
  - Toxicity to various agents [Recovering/Resolving]
  - Prescription drug used without a prescription [Unknown]
  - Atrial fibrillation [Recovering/Resolving]
  - Hyperkalaemia [Recovering/Resolving]
  - Intestinal ischaemia [Recovering/Resolving]
